FAERS Safety Report 9189908 (Version 3)
Quarter: 2016Q2

REPORT INFORMATION
  Report Type: Spontaneous
  Country: FI (occurrence: FI)
  Receive Date: 20130326
  Receipt Date: 20160421
  Transmission Date: 20160815
  Serious: Yes (Death, Hospitalization, Other)
  Sender: FDA-Public Use
  Company Number: FI-BAYER-2013-036484

PATIENT
  Age: 73 Year
  Sex: Female

DRUGS (3)
  1. NEXAVAR [Suspect]
     Active Substance: SORAFENIB
     Indication: THYROID CANCER
     Dosage: 400MG + 200MG, DAILY DOSE 600MG
     Route: 048
     Dates: start: 20130314, end: 20140210
  2. THYROXIN [Concomitant]
     Active Substance: LEVOTHYROXINE
     Dosage: DAILY DOSE .1 MG
     Route: 048
  3. NEXAVAR [Suspect]
     Active Substance: SORAFENIB
     Indication: THYROID CANCER
     Dosage: 800 MG DAILY DOSE
     Route: 048
     Dates: start: 20130215, end: 20130315

REACTIONS (9)
  - Back pain [None]
  - C-reactive protein increased [Not Recovered/Not Resolved]
  - Pneumonia [None]
  - Pneumonia [Fatal]
  - Headache [None]
  - Haemoptysis [Not Recovered/Not Resolved]
  - Asthenia [Not Recovered/Not Resolved]
  - Thyroid cancer [Fatal]
  - Skin exfoliation [None]

NARRATIVE: CASE EVENT DATE: 2013
